FAERS Safety Report 8172801-8 (Version None)
Quarter: 2012Q1

REPORT INFORMATION
  Report Type: 
  Country: None (occurrence: None)
  Receive Date: 20120223
  Receipt Date: 20120209
  Transmission Date: 20120608
  Serious: Yes (Other)
  Sender: FDA-Public Use
  Company Number: AUR-APL-2012-01056

PATIENT
  Sex: Female

DRUGS (5)
  1. EFFEXOR [Suspect]
     Indication: DEPRESSION
     Dosage: UNKNOWN
  2. EFFEXOR [Suspect]
     Indication: ANXIETY
     Dosage: UNKNOWN
  3. VENLAFAXINE [Suspect]
     Indication: ANXIETY
     Dosage: UNKNOWN
     Dates: start: 20110101
  4. VENLAFAXINE [Suspect]
     Indication: DEPRESSION
     Dosage: UNKNOWN
     Dates: start: 20110101
  5. EFFEXOR XR [Suspect]
     Indication: PRODUCT USED FOR UNKNOWN INDICATION
     Dosage: UNKNOWN

REACTIONS (8)
  - PRODUCT SUBSTITUTION ISSUE [None]
  - PRURITUS GENERALISED [None]
  - DRUG INEFFECTIVE [None]
  - BLISTER [None]
  - SCRATCH [None]
  - URTICARIA [None]
  - RENAL DISORDER [None]
  - HYPERTENSION [None]
